FAERS Safety Report 19674279 (Version 2)
Quarter: 2021Q4

REPORT INFORMATION
  Report Type: Report from Study
  Country: ZA (occurrence: ZA)
  Receive Date: 20210809
  Receipt Date: 20211130
  Transmission Date: 20220304
  Serious: Yes (Death)
  Sender: FDA-Public Use
  Company Number: ZA-NOVOPROD-834662

PATIENT
  Age: 67 Year
  Sex: Female

DRUGS (8)
  1. EUTHYROX [Concomitant]
     Active Substance: LEVOTHYROXINE SODIUM
     Indication: Thyroid disorder
     Dosage: UNK
     Route: 048
     Dates: end: 202107
  2. ASPIRIN [Concomitant]
     Active Substance: ASPIRIN
     Indication: Blood disorder prophylaxis
     Dosage: UNK
     Route: 048
     Dates: end: 202107
  3. CARVEDILOL [Concomitant]
     Active Substance: CARVEDILOL
     Indication: Cardiac disorder
     Dosage: UNK
     Route: 048
     Dates: end: 202107
  4. GLICLAZIDE [Concomitant]
     Active Substance: GLICLAZIDE
     Indication: Diabetes mellitus
     Dosage: UNK
     Route: 048
     Dates: end: 202107
  5. VILDAGLIPTIN [Concomitant]
     Active Substance: VILDAGLIPTIN
     Indication: Diabetes mellitus
     Dosage: UNK
     Route: 048
     Dates: end: 202107
  6. AMLODIPINE BESYLATE [Concomitant]
     Active Substance: AMLODIPINE BESYLATE
     Indication: Hypertension
     Dosage: UNK
     Route: 048
     Dates: end: 202107
  7. INSULIN ASPART [Suspect]
     Active Substance: INSULIN ASPART
     Indication: Diabetes mellitus
     Dosage: UNK
     Route: 058
     Dates: end: 202107
  8. TRESIBA [Suspect]
     Active Substance: INSULIN DEGLUDEC
     Indication: Diabetes mellitus
     Dosage: UNK
     Route: 058
     Dates: end: 202106

REACTIONS (1)
  - Death [Fatal]

NARRATIVE: CASE EVENT DATE: 20210701
